FAERS Safety Report 6058877-2 (Version None)
Quarter: 2009Q1

REPORT INFORMATION
  Report Type: 
  Country: None (occurrence: None)
  Receive Date: 20090130
  Receipt Date: 20090126
  Transmission Date: 20090719
  Serious: Yes (Life-Threatening, Hospitalization)
  Sender: FDA-Public Use
  Company Number: DE-GENENTECH-276132

PATIENT
  Sex: Male

DRUGS (4)
  1. EFALIZUMAB [Suspect]
     Indication: PSORIASIS
     Dosage: 125 MG, 1/WEEK
     Route: 058
     Dates: start: 20070922, end: 20090104
  2. THYRONAJOD [Concomitant]
     Indication: HYPERTHYROIDISM
     Dosage: 50 A?G, QD
     Route: 048
  3. METFORMIN [Concomitant]
     Indication: DIABETES MELLITUS
     Dosage: 850 MG, BID
     Route: 048
     Dates: start: 19990101
  4. ENALAPRIL MALEATE [Concomitant]
     Indication: HYPERTENSION
     Dosage: 5 MG, QD
     Route: 048
     Dates: start: 20050101

REACTIONS (2)
  - CEREBRAL INFARCTION [None]
  - VERTIGO [None]
